FAERS Safety Report 15714070 (Version 2)
Quarter: 2019Q1

REPORT INFORMATION
  Report Type: Report from Study
  Country: CO (occurrence: CO)
  Receive Date: 20181212
  Receipt Date: 20190117
  Transmission Date: 20190417
  Serious: Yes (Hospitalization)
  Sender: FDA-Public Use
  Company Number: CO-JNJFOC-20181207295

PATIENT
  Age: 70 Year
  Sex: Female
  Weight: 50 kg

DRUGS (1)
  1. SIMPONI [Suspect]
     Active Substance: GOLIMUMAB
     Indication: RHEUMATOID ARTHRITIS
     Route: 058
     Dates: start: 20181101, end: 20181101

REACTIONS (6)
  - Infected skin ulcer [Recovering/Resolving]
  - Insomnia [Unknown]
  - Hypersensitivity [Recovering/Resolving]
  - Spinal pain [Not Recovered/Not Resolved]
  - Nausea [Unknown]
  - Mouth injury [Unknown]

NARRATIVE: CASE EVENT DATE: 20181111
